FAERS Safety Report 7627020-8 (Version None)
Quarter: 2011Q3

REPORT INFORMATION
  Report Type: 
  Country: None (occurrence: None)
  Receive Date: 20110714
  Receipt Date: 20110629
  Transmission Date: 20111222
  Serious: Yes (Death, Other)
  Sender: FDA-Public Use
  Company Number: ALA_02205_2011

PATIENT
  Sex: Male
  Weight: 104.3273 kg

DRUGS (91)
  1. UNSPECIFIED SLEEP MEDICATION [Concomitant]
  2. RANITIDINE [Concomitant]
  3. DELTASONE /00044701/ [Concomitant]
  4. AZATHIOPRINE [Concomitant]
  5. IRBESARTAN [Concomitant]
  6. ROCALTROL [Concomitant]
  7. ALBUTEROL SULFATE AND IPRATROPIUM BROMIDE [Concomitant]
  8. ZOFRAN [Concomitant]
  9. LOSARTAN POTASSIUM [Concomitant]
  10. MOMETASANE FUROATE [Concomitant]
  11. FLUOCINOLONE ACETONIDE [Concomitant]
  12. LOPRESSOR [Concomitant]
  13. PEPCID [Concomitant]
  14. COUMADIN [Concomitant]
  15. IMODIUM MULTI-SYMPTOM RELIEF [Concomitant]
  16. PROPOXYPHENE HCL CAP [Concomitant]
  17. ACYCLOVIR /00587302/ [Concomitant]
  18. AMOXICILLIN [Concomitant]
  19. ALLOPURINOL [Concomitant]
  20. ZOSYN [Concomitant]
  21. IPRATROPIUM BROMIDE [Concomitant]
  22. REGLAN [Suspect]
     Indication: GASTROINTESTINAL DISORDER
     Dosage: (10 MG BID ORAL)
     Route: 048
     Dates: start: 19940524, end: 20091101
  23. REGLAN [Suspect]
     Indication: DIABETIC GASTROPATHY
     Dosage: (10 MG BID ORAL)
     Route: 048
     Dates: start: 19940524, end: 20091101
  24. FOLIC ACID [Concomitant]
  25. CELLCEPT [Concomitant]
  26. ZOCOR [Concomitant]
  27. VITAMIN B6 [Concomitant]
  28. IMDUR [Concomitant]
  29. RENAGEL /01459902/ [Concomitant]
  30. SODIUM BICARBONATE [Concomitant]
  31. CLOTRIMAZOLE [Concomitant]
  32. OS-CAL /00751519/ [Concomitant]
  33. ISOSORBIDE MONONITRATE [Concomitant]
  34. CALCIUM ACETATE [Concomitant]
  35. CALCITRIOL [Concomitant]
  36. CREON [Concomitant]
  37. BENADRYL [Concomitant]
  38. TEMAZEPAM [Concomitant]
  39. ASPIRIN [Concomitant]
  40. PHOSLO [Concomitant]
  41. CYCLOSPORINE [Concomitant]
  42. MORPHINE SULFATE [Concomitant]
  43. ATIVAN [Concomitant]
  44. PROTONIX [Concomitant]
  45. CHOLESTYRAMINE [Concomitant]
  46. LAMICTAL [Concomitant]
  47. PERCOCET-5 [Concomitant]
  48. AMBIEN [Concomitant]
  49. NOVOLIN R [Concomitant]
  50. FELODIPINE [Concomitant]
  51. KLOR-CON [Concomitant]
  52. LEVALBUTEROL HCL [Concomitant]
  53. PYRIDOXINE HCL [Concomitant]
  54. PROZAC [Concomitant]
  55. NOVOLIN 70/30 [Concomitant]
  56. INSULIN [Concomitant]
  57. ELAVIL [Concomitant]
  58. LASIX [Concomitant]
  59. GEMFIBROZIL [Concomitant]
  60. NEXIUM [Concomitant]
  61. ALLEGRA [Concomitant]
  62. PAXIL [Concomitant]
  63. SYNTHROID [Concomitant]
  64. FAMOTIDINE [Concomitant]
  65. LEVOTHYROXINE SODIUM [Concomitant]
  66. LEVAQUIN [Concomitant]
  67. AZITHROMYCIN [Concomitant]
  68. POTASSIUM [Concomitant]
  69. PROCRIT /00909301/ [Concomitant]
  70. DIOVAN [Concomitant]
  71. METOPROLOL TARTRATE [Concomitant]
  72. SIMVASTATIN [Concomitant]
  73. LORTAB [Concomitant]
  74. LORTAB [Concomitant]
  75. DOXYCYCLINE [Concomitant]
  76. FERROUS SULFATE TAB [Concomitant]
  77. EPOGEN [Concomitant]
  78. LANOXIN [Concomitant]
  79. TUMS /00751519/ [Concomitant]
  80. ZAROXOLYN [Concomitant]
  81. LOMOTIL [Concomitant]
  82. INSULIN GLARGINE [Concomitant]
  83. LISINOPRIL [Concomitant]
  84. ATORVASTATIN [Concomitant]
  85. DILTIAZEM HCL [Concomitant]
  86. GUAIFENESIN [Concomitant]
  87. AMLODIPINE BESYLATE [Concomitant]
  88. TERAZOSIN HCL [Concomitant]
  89. OMEPRAZOLE [Concomitant]
  90. SUCRALFATE [Concomitant]
  91. LOPERAMIDE [Concomitant]

REACTIONS (14)
  - DYSKINESIA [None]
  - DRY MOUTH [None]
  - ORAL PAIN [None]
  - TARDIVE DYSKINESIA [None]
  - CHOREA [None]
  - ECONOMIC PROBLEM [None]
  - VENTRICULAR FIBRILLATION [None]
  - MYOCARDIAL INFARCTION [None]
  - EXTRAPYRAMIDAL DISORDER [None]
  - PNEUMONIA STAPHYLOCOCCAL [None]
  - EMOTIONAL DISORDER [None]
  - ORAL DISCOMFORT [None]
  - RESTLESS LEGS SYNDROME [None]
  - RENAL FAILURE CHRONIC [None]
